FAERS Safety Report 10177203 (Version 1)
Quarter: 2014Q2

REPORT INFORMATION
  Report Type: Report from Study
  Country: CR (occurrence: CR)
  Receive Date: 20140516
  Receipt Date: 20140516
  Transmission Date: 20141212
  Serious: Yes (Other)
  Sender: FDA-Public Use
  Company Number: CR-BAYER-2014-069499

PATIENT
  Age: 36 Year
  Sex: Female

DRUGS (3)
  1. BETAFERON [Suspect]
  2. TIZANIDINE [Concomitant]
  3. MOBICOX [Concomitant]

REACTIONS (1)
  - Skin necrosis [None]
